FAERS Safety Report 15522201 (Version 1)
Quarter: 2018Q4

REPORT INFORMATION
  Report Type: Spontaneous
  Country: US (occurrence: US)
  Receive Date: 20181012
  Receipt Date: 20181012
  Transmission Date: 20190205
  Serious: No
  Sender: FDA-Public Use
  Company Number: None

PATIENT
  Sex: Female

DRUGS (2)
  1. ADVIL [Concomitant]
     Active Substance: IBUPROFEN
  2. CREST GUM DETOXIFY [Suspect]
     Active Substance: STANNOUS FLUORIDE

REACTIONS (6)
  - Pain in jaw [None]
  - Pain in extremity [None]
  - Gingival pain [None]
  - Toothache [None]
  - Oropharyngeal pain [None]
  - Malaise [None]

NARRATIVE: CASE EVENT DATE: 20180904
